FAERS Safety Report 13141984 (Version 1)
Quarter: 2017Q1

REPORT INFORMATION
  Report Type: Spontaneous
  Country: NL (occurrence: NL)
  Receive Date: 20170123
  Receipt Date: 20170123
  Transmission Date: 20170428
  Serious: Yes (Hospitalization, Disabling, Other)
  Sender: FDA-Public Use
  Company Number: PHHY2017NL004596

PATIENT
  Age: 55 Year
  Sex: Female

DRUGS (3)
  1. METHOTREXATE (METHOTREXATE SODIUM) [Suspect]
     Active Substance: METHOTREXATE SODIUM
     Indication: RHEUMATOID ARTHRITIS
     Dosage: 15MG, 1X/W VAN 16-06-2014 TOT 07-07-2015 7,5MG/W
     Route: 048
     Dates: start: 20130913
  2. HYDROXYCHLOROQUINE [Concomitant]
     Active Substance: HYDROXYCHLOROQUINE
     Indication: PRODUCT USED FOR UNKNOWN INDICATION
     Dosage: 2DD1
     Route: 048
     Dates: start: 20121203, end: 20130423
  3. FOLIUMZUUR SANDOZ [Suspect]
     Active Substance: FOLIC ACID
     Indication: RHEUMATOID ARTHRITIS
     Dosage: 5MG, 1X/W
     Route: 048
     Dates: start: 20130913

REACTIONS (1)
  - Liposarcoma [Unknown]

NARRATIVE: CASE EVENT DATE: 20161127
